FAERS Safety Report 13305262 (Version 4)
Quarter: 2019Q4

REPORT INFORMATION
  Report Type: Report from Study
  Country: FR (occurrence: FR)
  Receive Date: 20170308
  Receipt Date: 20191028
  Transmission Date: 20200122
  Serious: Yes (Death, Hospitalization, Other)
  Sender: FDA-Public Use
  Company Number: FR-AMGEN-FRACT2016072304

PATIENT
  Age: 65 Year
  Sex: Male
  Weight: 74 kg

DRUGS (19)
  1. ETANERCEPT [Suspect]
     Active Substance: ETANERCEPT
     Dosage: 50 MILLIGRAM, QWK
     Route: 058
     Dates: start: 201601, end: 20160426
  2. SORIATANE [Suspect]
     Active Substance: ACITRETIN
     Indication: PSORIASIS
     Dosage: 15 MG, UNK
     Route: 048
     Dates: start: 201312, end: 20140212
  3. SORIATANE [Suspect]
     Active Substance: ACITRETIN
     Dosage: 25 MG, 1X/DAY
     Route: 048
     Dates: start: 20140212, end: 20140312
  4. FLUTICASONE. [Concomitant]
     Active Substance: FLUTICASONE
     Dosage: UNK
  5. SORIATANE [Suspect]
     Active Substance: ACITRETIN
     Indication: PRODUCT USED FOR UNKNOWN INDICATION
     Dosage: 10 MG, UNK
     Route: 048
     Dates: start: 20131008, end: 201312
  6. VP-16 [Concomitant]
     Active Substance: ETOPOSIDE
     Dosage: UNK
  7. FOLIC ACID. [Concomitant]
     Active Substance: FOLIC ACID
     Indication: PSORIASIS
     Dosage: UNK UNK, WEEKLY
     Route: 048
     Dates: start: 20140312, end: 20150721
  8. ETANERCEPT [Suspect]
     Active Substance: ETANERCEPT
     Indication: PSORIASIS
     Dosage: 50 MILLIGRAM, 2 TIMES/WK
     Route: 058
     Dates: start: 20150721, end: 201601
  9. CARBOPLATIN. [Concomitant]
     Active Substance: CARBOPLATIN
     Dosage: UNK
     Route: 042
  10. ETANERCEPT [Suspect]
     Active Substance: ETANERCEPT
     Dosage: 25 MILLIGRAM, QWK
     Route: 058
     Dates: start: 20160426
  11. DUROGESIC [Concomitant]
     Active Substance: FENTANYL
     Dosage: 75 (UNK UNITS), EVERY 72 HOURS
  12. CLOBETASOL PROPIONATE. [Concomitant]
     Active Substance: CLOBETASOL PROPIONATE
     Dosage: UNK
  13. CICLOSPORIN [Suspect]
     Active Substance: CYCLOSPORINE
     Indication: PSORIASIS
     Dosage: UNK
     Route: 048
  14. CARBOPLATIN. [Concomitant]
     Active Substance: CARBOPLATIN
     Dosage: UNK
     Route: 042
  15. VP-16 [Concomitant]
     Active Substance: ETOPOSIDE
     Dosage: UNK
  16. DUROGESIC [Concomitant]
     Active Substance: FENTANYL
     Dosage: 75 (UNK UNITS), EVERY 72 HOURS
  17. METHOTREXATE SODIUM. [Suspect]
     Active Substance: METHOTREXATE SODIUM
     Indication: PSORIASIS
     Dosage: 15 MG, ONCE WEEKLY
     Route: 048
     Dates: start: 20140312, end: 20150721
  18. SORIATANE [Suspect]
     Active Substance: ACITRETIN
     Dosage: 10 MG, UNK
     Route: 048
     Dates: start: 20140312, end: 20150721
  19. SPECIAFOLDINE [Concomitant]
     Active Substance: FOLIC ACID
     Indication: PRODUCT USED FOR UNKNOWN INDICATION
     Dosage: 10 MG, ONCE WEEKLY
     Route: 048
     Dates: start: 2013, end: 201506

REACTIONS (3)
  - Neuroendocrine tumour of the lung metastatic [Fatal]
  - Drug ineffective [Recovering/Resolving]
  - Basal cell carcinoma [Recovered/Resolved]

NARRATIVE: CASE EVENT DATE: 20141126
